FAERS Safety Report 22028352 (Version 7)
Quarter: 2023Q2

REPORT INFORMATION
  Report Type: Report from Study
  Country: PH (occurrence: None)
  Receive Date: 20230223
  Receipt Date: 20230511
  Transmission Date: 20230722
  Serious: Yes (Hospitalization)
  Sender: FDA-Public Use
  Company Number: PH-Eisai Medical Research-EC-2023-134539

PATIENT
  Age: 48 Year
  Sex: Male
  Weight: 53 kg

DRUGS (7)
  1. LENVATINIB [Suspect]
     Active Substance: LENVATINIB
     Indication: Clear cell renal cell carcinoma
     Dosage: STARTING DOSE 20 MG, FLUCTUATED DOSAGE
     Route: 048
     Dates: start: 20220721, end: 20221226
  2. LENVATINIB [Suspect]
     Active Substance: LENVATINIB
     Dosage: STARTING AT 10 MG, FLUCTUATED DOSAGE
     Route: 048
     Dates: start: 20230105
  3. QUAVONLIMAB [Suspect]
     Active Substance: QUAVONLIMAB
     Indication: Clear cell renal cell carcinoma
     Dosage: QUAVONLIMAB 25MG + PEMBROLIZUMAB 400MG
     Route: 042
     Dates: start: 20220721, end: 20221124
  4. PEMBROLIZUMAB [Suspect]
     Active Substance: PEMBROLIZUMAB
     Dosage: QUAVONLIMAB 25MG + PEMBROLIZUMAB 400MG
     Route: 042
     Dates: start: 20230105
  5. AMLODIPINE [Concomitant]
     Active Substance: AMLODIPINE BESYLATE
     Dates: start: 20220821
  6. PREDNISONE [Concomitant]
     Active Substance: PREDNISONE
     Dates: start: 20221215, end: 20221222
  7. OMEPRAZOLE [Concomitant]
     Active Substance: OMEPRAZOLE
     Dates: start: 20221215, end: 20221222

REACTIONS (1)
  - Pneumonia [Recovered/Resolved]

NARRATIVE: CASE EVENT DATE: 20221226
